FAERS Safety Report 19788750 (Version 2)
Quarter: 2021Q4

REPORT INFORMATION
  Report Type: Other
  Country: US (occurrence: US)
  Receive Date: 20210904
  Receipt Date: 20211005
  Transmission Date: 20220304
  Serious: No
  Sender: FDA-Public Use
  Company Number: US-NEUROCRINE BIOSCIENCES INC.-2021NBI04700

PATIENT

DRUGS (2)
  1. INGREZZA [Suspect]
     Active Substance: VALBENAZINE
     Indication: Tardive dyskinesia
     Dosage: 40 MILLIGRAM, QD (ONCE DAILY) FOR 20 DAYS
     Route: 048
     Dates: start: 20200306
  2. INGREZZA [Suspect]
     Active Substance: VALBENAZINE
     Dosage: 80 MILLIGRAM, QD,  EVERY 3RD DAY, FOR 10 DAYS OF MONTH
     Route: 048
     Dates: start: 20210203, end: 20210830

REACTIONS (3)
  - Parkinsonism [Unknown]
  - Dizziness [Unknown]
  - Inappropriate schedule of product administration [Unknown]
